FAERS Safety Report 7350684-3 (Version None)
Quarter: 2011Q1

REPORT INFORMATION
  Report Type: 
  Country: None (occurrence: None)
  Receive Date: 20110303
  Receipt Date: 20110222
  Transmission Date: 20110831
  Serious: Yes (Hospitalization)
  Sender: FDA-Public Use
  Company Number: LEO-2011-00162

PATIENT
  Age: 64 Year
  Sex: Female
  Weight: 71 kg

DRUGS (2)
  1. INNOHEP [Suspect]
     Indication: CYST REMOVAL
     Dosage: (0.3 ML),SUBCUTANEOUS
     Route: 058
     Dates: start: 20101103, end: 20101112
  2. INNOHEP [Suspect]
     Indication: LAPAROSCOPIC SURGERY
     Dosage: (0.3 ML),SUBCUTANEOUS
     Route: 058
     Dates: start: 20101103, end: 20101112

REACTIONS (3)
  - PULMONARY EMBOLISM [None]
  - PLEURITIC PAIN [None]
  - HEPARIN-INDUCED THROMBOCYTOPENIA [None]
